FAERS Safety Report 7813957-3 (Version None)
Quarter: 2011Q4

REPORT INFORMATION
  Report Type: 
  Country: None (occurrence: None)
  Receive Date: 20111014
  Receipt Date: 20111010
  Transmission Date: 20120403
  Serious: Yes (Other)
  Sender: FDA-Public Use
  Company Number: ES-PFIZER INC-2011116336

PATIENT
  Age: 64 Year
  Sex: Female
  Weight: 75 kg

DRUGS (11)
  1. LINEZOLID [Suspect]
     Dosage: 600 MG, 2X/DAY
     Route: 048
     Dates: start: 20110519, end: 20110526
  2. ESCITALOPRAM [Concomitant]
     Dosage: UNK
     Route: 048
     Dates: start: 20090101, end: 20110428
  3. VENLAFAXINE HCL [Suspect]
     Indication: DEPRESSION
     Dosage: 150 MG, 1X/DAY
     Route: 048
     Dates: start: 20090101, end: 20110427
  4. VENLAFAXINE HCL [Suspect]
     Dosage: 75 MG, 1X/DAY
     Route: 048
     Dates: start: 20110428
  5. TEICOPLANIN [Concomitant]
     Indication: ENTEROCOCCAL INFECTION
     Dosage: UNK
  6. LINEZOLID [Suspect]
     Indication: ENTEROCOCCAL INFECTION
     Dosage: 600 MG, 2X/DAY
     Route: 042
     Dates: start: 20110518, end: 20110518
  7. NEURONTIN [Concomitant]
     Dosage: UNK
     Route: 048
     Dates: start: 20090101
  8. LEVOTHYROXINE SODIUM [Concomitant]
     Dosage: UNK
     Route: 048
     Dates: start: 20100101
  9. VANCOMYCIN [Concomitant]
     Indication: ENTEROCOCCAL INFECTION
     Dosage: UNK
  10. MYSOLINE [Concomitant]
     Dosage: UNK
     Route: 048
     Dates: start: 20090101, end: 20110201
  11. LORAZEPAM [Concomitant]
     Dosage: UNK
     Route: 048
     Dates: start: 20090101

REACTIONS (5)
  - FOOT OPERATION [None]
  - HYPERHIDROSIS [None]
  - MALAISE [None]
  - ENTEROCOCCAL INFECTION [None]
  - PYREXIA [None]
